FAERS Safety Report 6404560-0 (Version None)
Quarter: 2009Q4

REPORT INFORMATION
  Report Type: 
  Country: None (occurrence: None)
  Receive Date: 20091016
  Receipt Date: 20091013
  Transmission Date: 20100525
  Serious: Yes (Death)
  Sender: FDA-Public Use
  Company Number: PHHY2009CL44395

PATIENT
  Age: 89 Year
  Sex: Female

DRUGS (1)
  1. TAREG D [Suspect]
     Dosage: 80/12.5 MG
     Dates: start: 20080101

REACTIONS (1)
  - CEREBRAL INFARCTION [None]
